FAERS Safety Report 4889518-5 (Version None)
Quarter: 2006Q1

REPORT INFORMATION
  Report Type: 
  Country: None (occurrence: None)
  Receive Date: 20060124
  Receipt Date: 20060116
  Transmission Date: 20060701
  Serious: Yes (Death)
  Sender: FDA-Public Use
  Company Number: NL-JNJFOC-20050301706

PATIENT
  Sex: Female
  Weight: 65 kg

DRUGS (7)
  1. INFLIXIMAB [Suspect]
     Route: 042
  2. INFLIXIMAB [Suspect]
     Route: 042
  3. INFLIXIMAB [Suspect]
     Route: 042
  4. INFLIXIMAB [Suspect]
     Route: 042
  5. INFLIXIMAB [Suspect]
     Indication: MYELODYSPLASTIC SYNDROME
     Route: 042
  6. COTRIM [Concomitant]
  7. COTRIM [Concomitant]

REACTIONS (6)
  - ENCEPHALITIS [None]
  - FUNGAL INFECTION [None]
  - HEMIPARESIS [None]
  - MENINGITIS [None]
  - MYOCARDIAL INFARCTION [None]
  - SEPTIC SHOCK [None]
